FAERS Safety Report 15144534 (Version 4)
Quarter: 2018Q4

REPORT INFORMATION
  Report Type: Report from Study
  Country: US (occurrence: US)
  Receive Date: 20180713
  Receipt Date: 20181130
  Transmission Date: 20190204
  Serious: Yes (Other)
  Sender: FDA-Public Use
  Company Number: US-MALLINCKRODT-T201802400

PATIENT
  Age: 24 Year
  Sex: Female

DRUGS (2)
  1. REPOSITORY CORTICOTROPIN INJECTION [Suspect]
     Active Substance: CORTICOTROPIN
     Indication: FOCAL SEGMENTAL GLOMERULOSCLEROSIS
     Dosage: 80 UNITS/1ML, TWICE WEEKLY, TUESDAY/FRIDAY
     Route: 058
     Dates: start: 20180529, end: 2018
  2. REPOSITORY CORTICOTROPIN INJECTION [Suspect]
     Active Substance: CORTICOTROPIN
     Indication: NEPHROTIC SYNDROME
     Dosage: 80 UNITS/1ML, TWICE WEEKLY TUESDAY/FRIDAY
     Route: 058
     Dates: start: 2018, end: 20181113

REACTIONS (7)
  - Injection site erythema [Unknown]
  - Urinary tract infection [Not Recovered/Not Resolved]
  - Injection site pruritus [Unknown]
  - Gallbladder disorder [Not Recovered/Not Resolved]
  - Injection site swelling [Unknown]
  - Cholecystectomy [Unknown]
  - Migraine [Unknown]

NARRATIVE: CASE EVENT DATE: 2018
